FAERS Safety Report 6442653-2 (Version None)
Quarter: 2009Q4

REPORT INFORMATION
  Report Type: 
  Country: None (occurrence: None)
  Receive Date: 20091117
  Receipt Date: 20091109
  Transmission Date: 20100525
  Serious: Yes (Other)
  Sender: FDA-Public Use
  Company Number: US-JNJFOC-20091103294

PATIENT
  Sex: Female
  Weight: 60.78 kg

DRUGS (9)
  1. DURAGESIC-100 [Suspect]
     Indication: NEURALGIA
     Route: 062
  2. TOPAMAX [Concomitant]
     Indication: NEURALGIA
     Route: 048
  3. TRAMADOL HCL [Concomitant]
     Indication: PAIN
     Route: 048
  4. DIOVAN [Concomitant]
     Indication: HYPERTENSION
     Route: 048
  5. NEXIUM [Concomitant]
     Indication: GASTRIC DISORDER
     Route: 048
  6. PERCOCET [Concomitant]
     Indication: BREAKTHROUGH PAIN
     Dosage: AS NEEDED
     Route: 048
  7. PENTASA [Concomitant]
     Dosage: AS NEEDED
     Route: 048
  8. HUMULIN R [Concomitant]
     Indication: DIABETES MELLITUS
     Route: 058
  9. HUMULIN INSULIN N [Concomitant]
     Indication: DIABETES MELLITUS
     Route: 058

REACTIONS (4)
  - CROHN'S DISEASE [None]
  - IMMUNE SYSTEM DISORDER [None]
  - INAPPROPRIATE SCHEDULE OF DRUG ADMINISTRATION [None]
  - NEURALGIA [None]
